FAERS Safety Report 18053750 (Version 1)
Quarter: 2020Q3

REPORT INFORMATION
  Report Type: Spontaneous
  Country: US (occurrence: US)
  Receive Date: 20200721
  Receipt Date: 20200721
  Transmission Date: 20201103
  Serious: Yes (Other)
  Sender: FDA-Public Use
  Company Number: None

PATIENT
  Age: 50 Year
  Sex: Female
  Weight: 55.35 kg

DRUGS (1)
  1. METHYLPREDNISOLONE. [Suspect]
     Active Substance: METHYLPREDNISOLONE
     Indication: INFLAMMATION
     Dosage: ?          QUANTITY:21 TABLET(S);OTHER FREQUENCY:EACH DAY VARIED;?
     Route: 048
     Dates: start: 20200710, end: 20200711

REACTIONS (6)
  - Blood pressure increased [None]
  - Hypersensitivity [None]
  - Abdominal pain upper [None]
  - Headache [None]
  - Palpitations [None]
  - Vomiting [None]

NARRATIVE: CASE EVENT DATE: 20200711
